FAERS Safety Report 5303762-4 (Version None)
Quarter: 2007Q2

REPORT INFORMATION
  Report Type: 
  Country: None (occurrence: None)
  Receive Date: 20070420
  Receipt Date: 20070416
  Transmission Date: 20071010
  Serious: Yes (Other)
  Sender: FDA-Public Use
  Company Number: US-GENENTECH-240035

PATIENT
  Sex: Female
  Weight: 58 kg

DRUGS (5)
  1. AVASTIN [Suspect]
     Indication: NEUROENDOCRINE CARCINOMA
     Dosage: 7.5 MG/KG, UNK
     Route: 042
     Dates: start: 20070313
  2. OXALIPLATIN [Suspect]
     Indication: NEUROENDOCRINE CARCINOMA
     Dosage: 130 MG/M2, UNK
     Route: 042
     Dates: start: 20070313
  3. CAPECITABINE [Suspect]
     Indication: NEUROENDOCRINE CARCINOMA
     Dosage: 1150 MG, BID
  4. POTASSIUM CHLORIDE [Concomitant]
     Indication: DRUG USE FOR UNKNOWN INDICATION
     Dosage: 20 MEQ, UNK
  5. POTASSIUM CHLORIDE [Concomitant]
     Dosage: 40 MEQ, UNK

REACTIONS (1)
  - BLOOD POTASSIUM DECREASED [None]
